FAERS Safety Report 9230497 (Version 1)
Quarter: 2013Q2

REPORT INFORMATION
  Report Type: Spontaneous
  Country: FI (occurrence: FI)
  Receive Date: 20130415
  Receipt Date: 20130415
  Transmission Date: 20140414
  Serious: Yes (Other)
  Sender: FDA-Public Use
  Company Number: FI-JNJFOC-20130305074

PATIENT
  Age: 44 Year
  Sex: Female

DRUGS (5)
  1. REMICADE [Suspect]
     Indication: COLITIS ULCERATIVE
     Dosage: LAST DOSE (8TH WEEK)??TOTAL DOSE 2000MG
     Route: 042
     Dates: start: 20121106
  2. REMICADE [Suspect]
     Indication: COLITIS ULCERATIVE
     Dosage: LOADING DOSE
     Route: 042
     Dates: start: 20120925
  3. REMICADE [Suspect]
     Indication: COLITIS ULCERATIVE
     Dosage: 2ND WEEK AND 4TH WEEK
     Route: 042
     Dates: start: 201210
  4. PREDNISON [Concomitant]
     Route: 065
  5. PENTASA [Concomitant]
     Indication: COLITIS ULCERATIVE
     Dosage: 2*2
     Route: 048
     Dates: start: 20010101

REACTIONS (2)
  - Hepatotoxicity [Recovering/Resolving]
  - Systemic lupus erythematosus [Recovering/Resolving]
